FAERS Safety Report 7342798-9 (Version None)
Quarter: 2011Q1

REPORT INFORMATION
  Report Type: 
  Country: None (occurrence: None)
  Receive Date: 20110310
  Receipt Date: 20110121
  Transmission Date: 20110831
  Serious: Yes (Hospitalization)
  Sender: FDA-Public Use
  Company Number: US-BAYER-2011-021387

PATIENT
  Sex: Female
  Weight: 73 kg

DRUGS (3)
  1. YAZ [Suspect]
     Indication: CONTRACEPTION
     Dosage: UNK
  2. OCELLA [Suspect]
     Indication: CONTRACEPTION
     Dosage: UNK
  3. YASMIN [Suspect]
     Indication: CONTRACEPTION
     Dosage: UNK
     Dates: start: 20070726, end: 20080507

REACTIONS (5)
  - PYREXIA [None]
  - NAUSEA [None]
  - CHOLECYSTITIS [None]
  - VOMITING [None]
  - FLANK PAIN [None]
